FAERS Safety Report 9094078 (Version 3)
Quarter: 2013Q1

REPORT INFORMATION
  Report Type: Spontaneous
  Country: US (occurrence: US)
  Receive Date: 20130201
  Receipt Date: 20130226
  Transmission Date: 20140127
  Serious: Yes (Other)
  Sender: FDA-Public Use
  Company Number: US-JNJFOC-20130112638

PATIENT
  Age: 53 Year
  Sex: Female
  Weight: 64 kg

DRUGS (1)
  1. REMICADE [Suspect]
     Indication: CROHN^S DISEASE
     Dosage: 10 MG/KG
     Route: 042
     Dates: start: 20010622, end: 20120208

REACTIONS (2)
  - Small cell lung cancer [Not Recovered/Not Resolved]
  - Breast cancer [Unknown]
